APPROVED DRUG PRODUCT: BUPIVACAINE HYDROCHLORIDE
Active Ingredient: BUPIVACAINE HYDROCHLORIDE
Strength: 0.75%
Dosage Form/Route: INJECTABLE;SPINAL
Application: A207266 | Product #001
Applicant: BAXTER HEALTHCARE CORP
Approved: Jul 25, 2016 | RLD: No | RS: No | Type: DISCN